FAERS Safety Report 4885954-1 (Version None)
Quarter: 2006Q1

REPORT INFORMATION
  Report Type: 
  Country: None (occurrence: None)
  Receive Date: 20060117
  Receipt Date: 20060105
  Transmission Date: 20060701
  Serious: Yes (Death, Other)
  Sender: FDA-Public Use
  Company Number: 2005169383

PATIENT

DRUGS (2)
  1. VFEND [Suspect]
     Indication: MUCORMYCOSIS
     Dosage: INTRAVENOUS
     Route: 042
  2. VFEND [Suspect]
     Indication: ILL-DEFINED DISORDER
     Dosage: ORAL
     Route: 048

REACTIONS (3)
  - ASPARTATE AMINOTRANSFERASE INCREASED [None]
  - CONDITION AGGRAVATED [None]
  - MUCORMYCOSIS [None]
